FAERS Safety Report 11875875 (Version 1)
Quarter: 2015Q4

REPORT INFORMATION
  Report Type: Spontaneous
  Country: JP (occurrence: JP)
  Receive Date: 20151229
  Receipt Date: 20151229
  Transmission Date: 20160305
  Serious: Yes (Other)
  Sender: FDA-Public Use
  Company Number: JP-SA-2015SA219815

PATIENT

DRUGS (1)
  1. FLUDARA [Suspect]
     Active Substance: FLUDARABINE PHOSPHATE
     Route: 048

REACTIONS (1)
  - Cerebral haemorrhage [Unknown]
